FAERS Safety Report 11691717 (Version 1)
Quarter: 2015Q4

REPORT INFORMATION
  Report Type: Spontaneous
  Country: US (occurrence: US)
  Receive Date: 20151103
  Receipt Date: 20151103
  Transmission Date: 20160304
  Serious: No
  Sender: FDA-Public Use
  Company Number: US-AMGEN-USASP2015113699

PATIENT
  Age: 53 Year
  Sex: Female

DRUGS (18)
  1. ENBREL [Suspect]
     Active Substance: ETANERCEPT
     Indication: ANKYLOSING SPONDYLITIS
     Dosage: 50 MG, WEEKLY
     Route: 058
     Dates: start: 2014
  2. PRILOSEC [Concomitant]
     Active Substance: OMEPRAZOLE MAGNESIUM
     Dosage: UNK
  3. FLEXERIL [Concomitant]
     Active Substance: CYCLOBENZAPRINE HYDROCHLORIDE
     Dosage: UNK
  4. SINGULAIR [Concomitant]
     Active Substance: MONTELUKAST SODIUM
     Dosage: UNK
  5. ATORVASTATIN [Concomitant]
     Active Substance: ATORVASTATIN
     Dosage: UNK
  6. WELLBUTRIN [Concomitant]
     Active Substance: BUPROPION HYDROCHLORIDE
     Dosage: UNK
  7. HYDROXYZINE [Concomitant]
     Active Substance: HYDROXYZINE\HYDROXYZINE HYDROCHLORIDE
     Dosage: UNK
  8. XANAX [Concomitant]
     Active Substance: ALPRAZOLAM
     Dosage: UNK
  9. TRAMADOL. [Concomitant]
     Active Substance: TRAMADOL
     Dosage: UNK
  10. BUTRANS [Suspect]
     Active Substance: BUPRENORPHINE
     Indication: PRODUCT USED FOR UNKNOWN INDICATION
     Dosage: UNK
     Route: 065
  11. GLIPIZIDE. [Concomitant]
     Active Substance: GLIPIZIDE
     Dosage: UNK
  12. LOSARTAN. [Concomitant]
     Active Substance: LOSARTAN
     Dosage: UNK
  13. LYRICA [Concomitant]
     Active Substance: PREGABALIN
     Dosage: UNK
  14. METFORMINE [Concomitant]
     Active Substance: METFORMIN HYDROCHLORIDE
     Dosage: UNK
  15. ZOFRAN [Concomitant]
     Active Substance: ONDANSETRON HYDROCHLORIDE
     Dosage: UNK
  16. COENZYME Q10 [Concomitant]
     Active Substance: UBIDECARENONE
     Dosage: UNK
  17. MAGNESIUM [Concomitant]
     Active Substance: MAGNESIUM
     Dosage: UNK
  18. VITAMIN D                          /00107901/ [Concomitant]
     Active Substance: ERGOCALCIFEROL
     Dosage: UNK

REACTIONS (7)
  - Blood glucose decreased [Recovering/Resolving]
  - Nausea [Unknown]
  - Nervousness [Unknown]
  - Sinusitis [Unknown]
  - Blood glucose increased [Recovering/Resolving]
  - Fungal infection [Unknown]
  - Malaise [Unknown]

NARRATIVE: CASE EVENT DATE: 201507
